FAERS Safety Report 24098113 (Version 1)
Quarter: 2024Q3

REPORT INFORMATION
  Report Type: Spontaneous
  Country: FR (occurrence: FR)
  Receive Date: 20240716
  Receipt Date: 20240716
  Transmission Date: 20241017
  Serious: Yes (Other)
  Sender: AMERICAN REGENT
  Company Number: FR-AMERICAN REGENT INC-2024002684

PATIENT
  Age: 57 Year
  Sex: Male
  Weight: 220 kg

DRUGS (6)
  1. VENOFER [Suspect]
     Active Substance: IRON SUCROSE
     Indication: Iron deficiency anaemia
     Dosage: 300 MILLIGRAM, 1 IN 1 TOTAL
     Route: 042
     Dates: start: 20240612, end: 20240612
  2. IOBITRIDOL [Suspect]
     Active Substance: IOBITRIDOL
     Indication: Computerised tomogram
     Dosage: 1 DOSAGE FORM, 1 IN 1 TOTAL
     Route: 042
     Dates: start: 20240531, end: 20240531
  3. IOBITRIDOL [Suspect]
     Active Substance: IOBITRIDOL
     Dosage: 1 DOSAGE FORM, 1 IN 1 TOTAL
     Route: 042
     Dates: start: 20240612, end: 20240612
  4. PIPERACILLIN SODIUM\TAZOBACTAM SODIUM [Suspect]
     Active Substance: PIPERACILLIN SODIUM\TAZOBACTAM SODIUM
     Indication: Septic shock
     Dosage: 4 GRAM, 1 IN 8 HR
     Route: 042
     Dates: start: 20240601, end: 20240604
  5. PIPERACILLIN SODIUM\TAZOBACTAM SODIUM [Suspect]
     Active Substance: PIPERACILLIN SODIUM\TAZOBACTAM SODIUM
     Dosage: 4 GRAM, 1 IN 8 HR
     Route: 042
     Dates: start: 20240610, end: 20240614
  6. ALLOPURINOL [Suspect]
     Active Substance: ALLOPURINOL
     Indication: Gout
     Dosage: 100 MILLIGRAM, 1 IN 1 D
     Route: 048
     Dates: start: 20240609, end: 20240611

REACTIONS (1)
  - Acute generalised exanthematous pustulosis [Recovering/Resolving]

NARRATIVE: CASE EVENT DATE: 20240613
